FAERS Safety Report 6349515-X (Version None)
Quarter: 2009Q3

REPORT INFORMATION
  Report Type: 
  Country: None (occurrence: None)
  Receive Date: 20090911
  Receipt Date: 20090902
  Transmission Date: 20100115
  Serious: Yes (Other)
  Sender: FDA-Public Use
  Company Number: US-PFIZER INC-2009264022

PATIENT
  Sex: Female
  Weight: 72.109 kg

DRUGS (2)
  1. TOVIAZ [Suspect]
     Indication: URINARY INCONTINENCE
     Dosage: 4 MG, 1X/DAY
     Dates: start: 20090901
  2. ACTIGALL [Concomitant]
     Indication: CHOLELITHIASIS
     Dosage: UNK

REACTIONS (1)
  - DIZZINESS [None]
